FAERS Safety Report 6809303-4 (Version None)
Quarter: 2010Q2

REPORT INFORMATION
  Report Type: 
  Country: None (occurrence: None)
  Receive Date: 20100625
  Receipt Date: 20100615
  Transmission Date: 20101027
  Serious: Yes (Hospitalization)
  Sender: FDA-Public Use
  Company Number: 2010AL003590

PATIENT
  Age: 48 Year
  Sex: Female

DRUGS (3)
  1. CARBAMAZEPINE [Suspect]
     Indication: MYOCLONIC EPILEPSY
     Dosage: 200 MG; QAM
  2. LAMOTRIGINE [Concomitant]
  3. PREV MEDS [Concomitant]

REACTIONS (20)
  - ALANINE AMINOTRANSFERASE INCREASED [None]
  - BLOOD SODIUM DECREASED [None]
  - CHILLS [None]
  - DISORIENTATION [None]
  - DRUG HYPERSENSITIVITY [None]
  - FACE OEDEMA [None]
  - HEADACHE [None]
  - HYPOTENSION [None]
  - MENINGITIS [None]
  - NAUSEA [None]
  - NEUTROPHILIA [None]
  - OEDEMA PERIPHERAL [None]
  - PHOTOPHOBIA [None]
  - PLATELET COUNT DECREASED [None]
  - PYREXIA [None]
  - RASH ERYTHEMATOUS [None]
  - RASH MACULAR [None]
  - TACHYCARDIA [None]
  - VIRAL INFECTION [None]
  - VOMITING [None]
